FAERS Safety Report 13215922 (Version 3)
Quarter: 2017Q1

REPORT INFORMATION
  Report Type: Spontaneous
  Country: GB (occurrence: GB)
  Receive Date: 20170209
  Receipt Date: 20170314
  Transmission Date: 20170428
  Serious: Yes (Other)
  Sender: FDA-Public Use
  Company Number: GB-AMGEN-GBRSP2017021267

PATIENT
  Age: 85 Year
  Sex: Male

DRUGS (1)
  1. ENBREL [Suspect]
     Active Substance: ETANERCEPT
     Indication: PRODUCT USED FOR UNKNOWN INDICATION
     Dosage: 50 MG, UNK
     Route: 058

REACTIONS (9)
  - Interstitial lung disease [Unknown]
  - Cerebrovascular accident [Unknown]
  - Pruritus generalised [Unknown]
  - Fine motor skill dysfunction [Unknown]
  - Rash [Unknown]
  - Pneumothorax [Unknown]
  - Blindness [Unknown]
  - Chronic kidney disease [Unknown]
  - Sinusitis [Unknown]

NARRATIVE: CASE EVENT DATE: 2014
